FAERS Safety Report 7523077-3 (Version None)
Quarter: 2011Q2

REPORT INFORMATION
  Report Type: 
  Country: None (occurrence: None)
  Receive Date: 20110603
  Receipt Date: 20110531
  Transmission Date: 20111010
  Serious: Yes (Other)
  Sender: FDA-Public Use
  Company Number: US-BAYER-2011-047522

PATIENT
  Sex: Female

DRUGS (3)
  1. DROSPIRENONE AND ETHINYL ESTRADIOL [Suspect]
     Dosage: UNK
     Dates: start: 20080201, end: 20090501
  2. YAZ [Suspect]
     Dosage: UNK
     Dates: start: 20080201, end: 20090501
  3. YASMIN [Suspect]
     Dosage: UNK
     Dates: start: 20080201, end: 20090501

REACTIONS (9)
  - PSYCHIATRIC SYMPTOM [None]
  - FEAR [None]
  - EMOTIONAL DISTRESS [None]
  - INJURY [None]
  - ANXIETY [None]
  - ANHEDONIA [None]
  - TACHYCARDIA [None]
  - PAIN [None]
  - ARRHYTHMIA [None]
